FAERS Safety Report 21047108 (Version 1)
Quarter: 2022Q3

REPORT INFORMATION
  Report Type: Report from Study
  Country: FR (occurrence: None)
  Receive Date: 20220706
  Receipt Date: 20220706
  Transmission Date: 20221027
  Serious: Yes (Death, Hospitalization)
  Sender: FDA-Public Use
  Company Number: 2022A079651

PATIENT
  Age: 867 Month
  Sex: Male
  Weight: 79 kg

DRUGS (4)
  1. EVUSHELD [Suspect]
     Active Substance: CILGAVIMAB\TIXAGEVIMAB
     Indication: COVID-19 prophylaxis
     Route: 030
     Dates: start: 20220110
  2. CELLCEPT [Concomitant]
     Active Substance: MYCOPHENOLATE MOFETIL
  3. PREDNISONE [Concomitant]
     Active Substance: PREDNISONE
  4. NULOJIX [Concomitant]
     Active Substance: BELATACEPT

REACTIONS (2)
  - COVID-19 [Fatal]
  - Sepsis [Fatal]

NARRATIVE: CASE EVENT DATE: 20220125
